FAERS Safety Report 8800299 (Version 2)
Quarter: 2012Q4

REPORT INFORMATION
  Report Type: 
  Country: UA (occurrence: UA)
  Receive Date: 20120921
  Receipt Date: 20121004
  Transmission Date: 20130627
  Serious: Yes (Hospitalization)
  Sender: FDA-Public Use
  Company Number: UA-JNJFOC-20120905880

PATIENT
  Age: 2 Year
  Sex: Male

DRUGS (5)
  1. ORUNGAL [Suspect]
     Indication: MICROSPORIDIA INFECTION
     Route: 048
     Dates: start: 20120822, end: 20120825
  2. INDOCIN [Suspect]
     Indication: MICROSPORIDIA INFECTION
     Route: 061
     Dates: start: 201208
  3. KETOCONAZOLE [Suspect]
     Indication: MICROSPORIDIA INFECTION
     Route: 061
     Dates: start: 201208
  4. SULFUR [Suspect]
     Indication: MICROSPORIDIA INFECTION
     Route: 061
     Dates: start: 201208
  5. UNSPECIFIED INGREDIENT [Suspect]
     Indication: PRODUCT USED FOR UNKNOWN INDICATION
     Route: 061

REACTIONS (3)
  - Balance disorder [Not Recovered/Not Resolved]
  - Tremor [Not Recovered/Not Resolved]
  - Headache [Not Recovered/Not Resolved]
